FAERS Safety Report 4578751-8 (Version None)
Quarter: 2005Q1

REPORT INFORMATION
  Report Type: 
  Country: None (occurrence: None)
  Receive Date: 20050211
  Receipt Date: 20050119
  Transmission Date: 20050727
  Serious: Yes (Death, Life-Threatening)
  Sender: FDA-Public Use
  Company Number: PHBS2005SG01079

PATIENT
  Age: 56 Year
  Sex: Female

DRUGS (3)
  1. LETROZOLE [Suspect]
     Indication: BREAST CANCER STAGE IV
     Dosage: UNK, UNK
     Route: 048
     Dates: start: 20041026, end: 20041201
  2. OMEPRAZOLE [Concomitant]
     Dates: start: 20041025
  3. DEXAMETHASONE [Concomitant]
     Dates: start: 20041025

REACTIONS (3)
  - MALIGNANT NEOPLASM PROGRESSION [None]
  - STEVENS-JOHNSON SYNDROME [None]
  - TOXIC EPIDERMAL NECROLYSIS [None]
